FAERS Safety Report 21654474 (Version 2)
Quarter: 2023Q1

REPORT INFORMATION
  Report Type: Spontaneous
  Country: FR (occurrence: FR)
  Receive Date: 20221129
  Receipt Date: 20230306
  Transmission Date: 20230418
  Serious: Yes (Hospitalization, Other)
  Sender: FDA-Public Use
  Company Number: FR-JNJFOC-20221146295

PATIENT
  Age: 65 Year
  Sex: Female
  Weight: 58 kg

DRUGS (1)
  1. TECLISTAMAB [Suspect]
     Active Substance: TECLISTAMAB
     Indication: Plasma cell myeloma
     Route: 058
     Dates: start: 20220819

REACTIONS (3)
  - Cerebral toxoplasmosis [Recovering/Resolving]
  - Lymphopenia [Recovering/Resolving]
  - Opportunistic infection [Recovering/Resolving]

NARRATIVE: CASE EVENT DATE: 20221008
